FAERS Safety Report 20973799 (Version 3)
Quarter: 2022Q3

REPORT INFORMATION
  Report Type: Spontaneous
  Country: CA (occurrence: CA)
  Receive Date: 20220617
  Receipt Date: 20220901
  Transmission Date: 20221027
  Serious: Yes (Other)
  Sender: FDA-Public Use
  Company Number: CA-PFIZER INC-202200839063

PATIENT
  Age: 24 Year
  Sex: Female

DRUGS (4)
  1. ABRILADA [Suspect]
     Active Substance: ADALIMUMAB-AFZB
     Indication: Crohn^s disease
     Dosage: 160 MG, WEEK 0 (THEN 80 MG WEEK 2, 40 MG EVERY 2 WEEKS AFTERWARDS)
     Route: 058
     Dates: start: 20220524
  2. ABRILADA [Suspect]
     Active Substance: ADALIMUMAB-AFZB
     Dosage: 160 MG, WEEK 0 (THEN 80 MG WEEK 2, 40 MG EVERY 2 WEEKS AFTERWARDS)
     Route: 058
     Dates: start: 20220607
  3. ABRILADA [Suspect]
     Active Substance: ADALIMUMAB-AFZB
     Dosage: 160 MG, WEEK 0 (THEN 80 MG WEEK 2, 40 MG EVERY 2 WEEKS AFTERWARDS)
     Route: 058
     Dates: start: 20220824
  4. PREDNISONE [Concomitant]
     Active Substance: PREDNISONE
     Dosage: 1 DF
     Route: 065

REACTIONS (6)
  - Tonsillectomy [Unknown]
  - Abdominal pain upper [Unknown]
  - Decreased appetite [Not Recovered/Not Resolved]
  - Nausea [Not Recovered/Not Resolved]
  - Diarrhoea [Not Recovered/Not Resolved]
  - Inappropriate schedule of product administration [Unknown]

NARRATIVE: CASE EVENT DATE: 20220101
